FAERS Safety Report 8736774 (Version 2)
Quarter: 2012Q4

REPORT INFORMATION
  Report Type: Spontaneous
  Country: NO (occurrence: None)
  Receive Date: 20120803
  Receipt Date: 20121011
  Transmission Date: 20130627
  Serious: Yes (Other)
  Sender: FDA-Public Use
  Company Number: 1363277

PATIENT
  Age: 24 Year
  Sex: Male

DRUGS (7)
  1. VINCRISTINE SULFATE [Suspect]
     Indication: HODGKIN^S DISEASE
     Dosage: 1.4 MG/M^2, INTRAVENOUS (NOT OTHERWISE SPECIFIED)
     Route: 042
  2. BLEOMYCIN SULFATE [Suspect]
     Indication: HODGKIN^S DISEASE
     Dosage: 10000 IU, INTRAVENOUS (NOT OTHERWISE SPECIFIED)
     Route: 042
  3. ETOPOSIDE [Suspect]
     Indication: HODGKIN^S DISEASE
     Dosage: 100 MG/M^2, INTRAVENOUS (NOT OTHERWISE SPECIFIED)
     Route: 042
  4. DOXORUBICIN HYDROCHLORIDE [Suspect]
     Indication: HODGKIN^S DISEASE
     Dosage: 25 MG/M^2, INTRAVENOUS (NOT OTHERWISE SPECIFIED)
     Route: 042
  5. CYCLOPHOSPHAMIDE [Suspect]
     Indication: HODGKIN^S DISEASE
     Dosage: 650 MG/M^2, INTRAVENOUS (NOT OTHERWISE SPECIFIED)
     Route: 042
  6. PROCARBAZINE HYDROCHLORIDE [Suspect]
     Indication: HODGKIN^S DISEASE
     Dosage: 100 MG/M^2, ORAL
     Route: 048
  7. PREDNISOLONE [Suspect]
     Indication: HODGKIN^S DISEASE
     Dosage: 40 MG/M^2, ORAL
     Route: 048

REACTIONS (1)
  - OSTEONECROSIS [None]
